FAERS Safety Report 11211053 (Version 6)
Quarter: 2016Q3

REPORT INFORMATION
  Report Type: Report from Study
  Country: DE (occurrence: DE)
  Receive Date: 20150623
  Receipt Date: 20160824
  Transmission Date: 20161109
  Serious: Yes (Other)
  Sender: FDA-Public Use
  Company Number: DE-AMGEN-DEUNI2015059919

PATIENT
  Age: 83 Year
  Sex: Male

DRUGS (5)
  1. OXALIPLATIN. [Concomitant]
     Active Substance: OXALIPLATIN
     Indication: COLORECTAL CANCER METASTATIC
     Dosage: 200 MG, UNK
     Route: 042
     Dates: start: 20150407
  2. 5-FU [Concomitant]
     Active Substance: FLUOROURACIL
     Dosage: 4800 MG, UNK
     Route: 042
     Dates: start: 20150407
  3. RIBOFOLIN [Concomitant]
     Indication: COLORECTAL CANCER METASTATIC
     Dosage: 800 MG, UNK
     Route: 042
     Dates: start: 20150407
  4. PANITUMUMAB [Suspect]
     Active Substance: PANITUMUMAB
     Indication: COLORECTAL CANCER METASTATIC
     Dosage: 520 MG, UNK
     Route: 042
     Dates: start: 20150407
  5. 5-FU [Concomitant]
     Active Substance: FLUOROURACIL
     Indication: COLORECTAL CANCER METASTATIC
     Dosage: 800 MG, UNK
     Route: 042
     Dates: start: 20150407

REACTIONS (8)
  - Dermatitis [Recovered/Resolved]
  - Nausea [Recovered/Resolved]
  - Paraesthesia [Not Recovered/Not Resolved]
  - Pruritus [Recovered/Resolved]
  - Chest pain [Not Recovered/Not Resolved]
  - Xerosis [Recovered/Resolved]
  - Dry skin [Recovered/Resolved]
  - Angina pectoris [Not Recovered/Not Resolved]

NARRATIVE: CASE EVENT DATE: 20150407
